FAERS Safety Report 23658869 (Version 2)
Quarter: 2025Q2

REPORT INFORMATION
  Report Type: Report from Study
  Country: CO (occurrence: CO)
  Receive Date: 20240321
  Receipt Date: 20250502
  Transmission Date: 20250717
  Serious: Yes (Other)
  Sender: GSK
  Company Number: CO-GLAXOSMITHKLINE-CO2024AMR022872

PATIENT

DRUGS (2)
  1. BELIMUMAB [Suspect]
     Active Substance: BELIMUMAB
     Indication: Systemic lupus erythematosus
     Dosage: 480 MG, Q4W
     Dates: start: 20220615
  2. BELIMUMAB [Suspect]
     Active Substance: BELIMUMAB
     Dosage: 480 MG, MO

REACTIONS (2)
  - Neck mass [Recovered/Resolved]
  - Influenza [Recovered/Resolved]

NARRATIVE: CASE EVENT DATE: 20230501
